FAERS Safety Report 14603226 (Version 1)
Quarter: 2018Q1

REPORT INFORMATION
  Report Type: Spontaneous
  Country: US (occurrence: US)
  Receive Date: 20180306
  Receipt Date: 20180306
  Transmission Date: 20180509
  Serious: No
  Sender: FDA-Public Use
  Company Number: US-009507513-1803USA002148

PATIENT
  Sex: Female

DRUGS (1)
  1. BELSOMRA [Suspect]
     Active Substance: SUVOREXANT
     Indication: PAIN IN EXTREMITY
     Dosage: 15 MG, EVERY NOW AND THEN
     Route: 065

REACTIONS (1)
  - Product use in unapproved indication [Unknown]
